FAERS Safety Report 5896218-1 (Version None)
Quarter: 2008Q3

REPORT INFORMATION
  Report Type: 
  Country: None (occurrence: None)
  Receive Date: 20080924
  Receipt Date: 20080912
  Transmission Date: 20090109
  Serious: Yes (Other)
  Sender: FDA-Public Use
  Company Number: US-PFIZER INC-2008077232

PATIENT
  Sex: Male
  Weight: 86.2 kg

DRUGS (8)
  1. DETROL LA [Suspect]
     Indication: URINARY INCONTINENCE
  2. VESICARE [Suspect]
     Dates: start: 20080101, end: 20080101
  3. PROPRANOLOL [Concomitant]
     Indication: HEADACHE
  4. ACETYLSALICYLIC ACID SRT [Concomitant]
  5. OSTEO BI-FLEX [Concomitant]
  6. TERAZOSIN HCL [Concomitant]
  7. LIPITOR [Concomitant]
  8. LEVOTHYROXINE SODIUM [Concomitant]
     Indication: THYROID DISORDER

REACTIONS (5)
  - BREAST DISORDER MALE [None]
  - BREAST ENLARGEMENT [None]
  - DRY MOUTH [None]
  - TOOTH DISORDER [None]
  - VISION BLURRED [None]
